FAERS Safety Report 6158990-5 (Version None)
Quarter: 2009Q2

REPORT INFORMATION
  Report Type: 
  Country: None (occurrence: None)
  Receive Date: 20090417
  Receipt Date: 20090413
  Transmission Date: 20091009
  Serious: Yes (Other)
  Sender: FDA-Public Use
  Company Number: ES-JNJFOC-20090104250

PATIENT
  Sex: Female

DRUGS (3)
  1. TOPAMAX [Suspect]
     Indication: IMPULSIVE BEHAVIOUR
     Route: 048
  2. CYMBALTA [Concomitant]
     Indication: DEPRESSION
  3. REXER [Concomitant]
     Indication: INSOMNIA

REACTIONS (1)
  - BILIARY COLIC [None]
